FAERS Safety Report 5793503-9 (Version None)
Quarter: 2008Q2

REPORT INFORMATION
  Report Type: 
  Country: None (occurrence: None)
  Receive Date: 20080627
  Receipt Date: 20080619
  Transmission Date: 20081010
  Serious: Yes (Hospitalization)
  Sender: FDA-Public Use
  Company Number: SE-ALLERGAN-0807550US

PATIENT
  Sex: Male
  Weight: 86 kg

DRUGS (8)
  1. BOTOX [Suspect]
     Indication: MUSCLE SPASTICITY
     Dosage: 450 UNITS, SINGLE
     Route: 030
     Dates: start: 20080404, end: 20080404
  2. BLINDED BOTULINUM TOXIN TYPE A - GENERAL [Suspect]
     Indication: MUSCLE SPASTICITY
     Dosage: 450 UNITS, SINGLE
     Route: 030
     Dates: start: 20080404, end: 20080404
  3. ASPIRIN [Concomitant]
     Dosage: 75 MG, QD
  4. PERSANTIN DEPOT [Concomitant]
     Dosage: 200 MG, BID
  5. SIMVASTATIN [Concomitant]
     Dosage: 20 MG, QD
  6. METFORMIN HCL [Concomitant]
     Dosage: 500 MG, BID
  7. ENALAPRIL MALEATE [Concomitant]
     Dosage: 10 MG, QD
  8. METOPROLOL [Concomitant]
     Dosage: 50 MG, QD

REACTIONS (1)
  - ANAEMIA [None]
